FAERS Safety Report 25037493 (Version 1)
Quarter: 2025Q1

REPORT INFORMATION
  Report Type: Spontaneous
  Country: FR (occurrence: FR)
  Receive Date: 20250304
  Receipt Date: 20250304
  Transmission Date: 20250409
  Serious: Yes (Other)
  Sender: GLAXOSMITHKLINE
  Company Number: None

PATIENT

DRUGS (10)
  1. JEMPERLI [Suspect]
     Active Substance: DOSTARLIMAB-GXLY
     Indication: Bladder transitional cell carcinoma
     Route: 042
     Dates: start: 20230908, end: 20230908
  2. JEMPERLI [Suspect]
     Active Substance: DOSTARLIMAB-GXLY
     Route: 042
     Dates: start: 20230929, end: 20230929
  3. JEMPERLI [Suspect]
     Active Substance: DOSTARLIMAB-GXLY
     Route: 042
     Dates: start: 20231020, end: 20231020
  4. JEMPERLI [Suspect]
     Active Substance: DOSTARLIMAB-GXLY
     Route: 042
     Dates: start: 20231110, end: 20231110
  5. PADCEV [Suspect]
     Active Substance: ENFORTUMAB VEDOTIN-EJFV
     Indication: Bladder transitional cell carcinoma
     Route: 042
     Dates: start: 20231214, end: 20240301
  6. PADCEV [Suspect]
     Active Substance: ENFORTUMAB VEDOTIN-EJFV
     Route: 042
     Dates: start: 20240119
  7. PADCEV [Suspect]
     Active Substance: ENFORTUMAB VEDOTIN-EJFV
     Route: 042
     Dates: start: 20240124
  8. PADCEV [Suspect]
     Active Substance: ENFORTUMAB VEDOTIN-EJFV
     Route: 042
     Dates: start: 20240202
  9. PADCEV [Suspect]
     Active Substance: ENFORTUMAB VEDOTIN-EJFV
     Route: 042
     Dates: start: 20240216
  10. PADCEV [Suspect]
     Active Substance: ENFORTUMAB VEDOTIN-EJFV
     Route: 042
     Dates: start: 20240301

REACTIONS (9)
  - Rash macular [Recovered/Resolved]
  - Mucosal inflammation [Recovering/Resolving]
  - Lichenoid keratosis [Recovering/Resolving]
  - Renal impairment [Unknown]
  - Diabetes mellitus [Unknown]
  - Haematuria [Unknown]
  - Mouth ulceration [Unknown]
  - Rash [Unknown]
  - Off label use [Unknown]

NARRATIVE: CASE EVENT DATE: 20231214
